FAERS Safety Report 6836876-8 (Version None)
Quarter: 2010Q3

REPORT INFORMATION
  Report Type: 
  Country: None (occurrence: None)
  Receive Date: 20100713
  Receipt Date: 20070430
  Transmission Date: 20110219
  Serious: No
  Sender: FDA-Public Use
  Company Number: US-PFIZER INC-2007035665

PATIENT
  Sex: Male
  Weight: 77.11 kg

DRUGS (4)
  1. CHANTIX [Suspect]
     Indication: SMOKING CESSATION THERAPY
     Dates: start: 20070430
  2. LIPITOR [Concomitant]
     Dates: start: 19970101
  3. PRINZIDE [Concomitant]
     Dates: start: 19970101
  4. ATENOLOL [Concomitant]
     Dates: start: 19970101

REACTIONS (1)
  - BLOOD GLUCOSE DECREASED [None]
